FAERS Safety Report 14501942 (Version 1)
Quarter: 2018Q1

REPORT INFORMATION
  Report Type: Report from Study
  Country: None (occurrence: FR)
  Receive Date: 20180208
  Receipt Date: 20180208
  Transmission Date: 20180509
  Serious: Yes (Disabling)
  Sender: FDA-Public Use
  Company Number: FR-ABBVIE-18K-056-2231289-00

PATIENT
  Age: 62 Year
  Sex: Male
  Weight: 67 kg

DRUGS (1)
  1. DUODOPA [Suspect]
     Active Substance: CARBIDOPA\LEVODOPA
     Indication: PARKINSON^S DISEASE
     Dosage: FLOW RATE DURING THE DAY: 4.1 ML/H ON 12H?MORNING DOSE: 13 ML
     Route: 050
     Dates: start: 20171129, end: 20180111

REACTIONS (3)
  - General physical health deterioration [Not Recovered/Not Resolved]
  - Drug ineffective [Not Recovered/Not Resolved]
  - Eschar [Not Recovered/Not Resolved]

NARRATIVE: CASE EVENT DATE: 201801
